FAERS Safety Report 6684825-8 (Version None)
Quarter: 2010Q2

REPORT INFORMATION
  Report Type: 
  Country: None (occurrence: None)
  Receive Date: 20100414
  Receipt Date: 20100331
  Transmission Date: 20101027
  Serious: Yes (Hospitalization)
  Sender: FDA-Public Use
  Company Number: 7000032

PATIENT
  Age: 40 Year
  Sex: Female

DRUGS (1)
  1. REBIF [Suspect]
     Indication: MULTIPLE SCLEROSIS
     Dosage: 44 MCG, 3 IN 1 WK, SUBCUTANEOUS
     Route: 058
     Dates: start: 20070822, end: 20091101

REACTIONS (5)
  - DEVICE RELATED INFECTION [None]
  - GASTROINTESTINAL OEDEMA [None]
  - PYREXIA [None]
  - SEPSIS [None]
  - WALKING AID USER [None]
